FAERS Safety Report 5313743-2 (Version None)
Quarter: 2007Q2

REPORT INFORMATION
  Report Type: 
  Country: None (occurrence: None)
  Receive Date: 20070426
  Receipt Date: 20070412
  Transmission Date: 20071010
  Serious: Yes (Other)
  Sender: FDA-Public Use
  Company Number: 100#08#2007-01194

PATIENT
  Age: 55 Year
  Sex: Male

DRUGS (3)
  1. CIPROFLOXACIN [Suspect]
     Indication: DRUG USE FOR UNKNOWN INDICATION
     Dosage: 1500 MG ORAL; TOTAL CUMULATIVE PERIOD OF APPROXIMATELY 6 YEARS
     Route: 048
  2. CEPHALEXIN [Concomitant]
  3. OPIOID ANALGESICS (OPIOID ANALGESICS) [Concomitant]

REACTIONS (9)
  - AMBLYOPIA ALCOHOL [None]
  - ANAEMIA MACROCYTIC [None]
  - BLOOD ALCOHOL INCREASED [None]
  - CHOROIDAL NAEVUS [None]
  - GAMMA-GLUTAMYLTRANSFERASE INCREASED [None]
  - OPTIC ATROPHY [None]
  - OPTIC NEUROPATHY [None]
  - OSTEOMYELITIS [None]
  - SCOTOMA [None]
